FAERS Safety Report 8734669 (Version 2)
Quarter: 2012Q4

REPORT INFORMATION
  Report Type: Spontaneous
  Country: US (occurrence: None)
  Receive Date: 20120803
  Receipt Date: 20120817
  Transmission Date: 20130627
  Serious: Yes (Death)
  Sender: FDA-Public Use
  Company Number: UTC-021372

PATIENT
  Age: 70 Year
  Sex: Female
  Weight: 70 kg

DRUGS (4)
  1. TYVASO [Suspect]
     Indication: PULMONARY ARTERIAL HYPERTENSION
     Dosage: 18 TO 54 MGS (4 IN 1 D), INHALATION
     Route: 055
     Dates: start: 20100611
  2. COUMADIN [Concomitant]
  3. REVATIO [Concomitant]
  4. LETAIRIS [Concomitant]

REACTIONS (2)
  - Therapy cessation [None]
  - Septic shock [None]
